FAERS Safety Report 23836209 (Version 13)
Quarter: 2024Q3

REPORT INFORMATION
  Report Type: Spontaneous
  Country: DE (occurrence: DE)
  Receive Date: 20240509
  Receipt Date: 20240718
  Transmission Date: 20241016
  Serious: Yes (Disabling, Other)
  Sender: PFIZER
  Company Number: DE-PFIZER INC-202400098460

PATIENT
  Age: 79 Year
  Sex: Male
  Weight: 67 kg

DRUGS (8)
  1. ELIQUIS [Suspect]
     Active Substance: APIXABAN
     Indication: Atrial fibrillation
     Dosage: 5 MG, 2X/DAY
     Route: 048
     Dates: start: 202310
  2. VYNDAQEL [Suspect]
     Active Substance: TAFAMIDIS MEGLUMINE
     Indication: Cardiac amyloidosis
     Dosage: 61 MG, 1X/DAY
     Route: 048
     Dates: start: 202302
  3. DAPAGLIFLOZIN [Concomitant]
     Active Substance: DAPAGLIFLOZIN
     Indication: Cardiac disorder
     Dosage: 10MG, 1X/DAY A TABLET AND SINCE 1 WEEK PRIOR TO THE EVENT 15MG
  4. DAPAGLIFLOZIN [Concomitant]
     Active Substance: DAPAGLIFLOZIN
     Dosage: SINCE 1 WEEK PRIOR TO THE EVENT
  5. ROSUVASTATIN [Concomitant]
     Active Substance: ROSUVASTATIN
     Indication: Hypercholesterolaemia
     Dosage: 10 MG, 1X/DAY
  6. TAMSULOSIN HYDROCHLORIDE [Concomitant]
     Active Substance: TAMSULOSIN HYDROCHLORIDE
     Indication: Bladder disorder
     Dosage: 0.4 MG, 1X/DAY
  7. VALSARTAN [Concomitant]
     Active Substance: VALSARTAN
     Indication: Hypertension
     Dosage: 80 MG, AS NEEDED (SELDOM)
  8. BISOPROLOL FUMARATE [Concomitant]
     Active Substance: BISOPROLOL FUMARATE
     Indication: Heart rate increased
     Dosage: 2.5 MG, AS NEEDED, HALF OF TABLET PER DAY

REACTIONS (1)
  - Deafness unilateral [Not Recovered/Not Resolved]

NARRATIVE: CASE EVENT DATE: 20230901
